FAERS Safety Report 9338779 (Version 1)
Quarter: 2013Q2

REPORT INFORMATION
  Report Type: Spontaneous
  Country: PT (occurrence: PT)
  Receive Date: 20130610
  Receipt Date: 20130610
  Transmission Date: 20140414
  Serious: Yes (Other)
  Sender: FDA-Public Use
  Company Number: PT-JNJFOC-20130522863

PATIENT
  Age: 29 Year
  Sex: Female
  Weight: 86 kg

DRUGS (7)
  1. STELARA [Suspect]
     Indication: NAIL PSORIASIS
     Dosage: AT 0 WEEK AND 4 WEEK; 12/12 WEEK POSTERIORLY
     Route: 058
  2. STELARA [Suspect]
     Indication: NAIL PSORIASIS
     Route: 058
  3. STELARA [Suspect]
     Indication: ERYTHRODERMIC PSORIASIS
     Route: 058
  4. STELARA [Suspect]
     Indication: ERYTHRODERMIC PSORIASIS
     Dosage: AT 0 WEEK AND 4 WEEK; 12/12 WEEK POSTERIORLY
     Route: 058
  5. ISONIAZID [Suspect]
     Indication: TUBERCULOSIS
     Dosage: 9 MONTHS
     Route: 065
  6. HYDROCHLOROTHIAZIDE\IRBESARTAN [Suspect]
     Indication: HYPERTENSION
     Dosage: IRBESARTAN 150 MG, HYDROCHLORTHIAZIDE 12, 5 MG
     Route: 065
  7. INDAPAMIDE [Suspect]
     Indication: HYPERTENSION
     Route: 065

REACTIONS (4)
  - Abortion spontaneous [Unknown]
  - Weight decreased [Unknown]
  - Exposure during pregnancy [Recovered/Resolved]
  - Off label use [Unknown]
